FAERS Safety Report 7589141-8 (Version None)
Quarter: 2011Q3

REPORT INFORMATION
  Report Type: 
  Country: None (occurrence: None)
  Receive Date: 20110705
  Receipt Date: 20110531
  Transmission Date: 20111222
  Serious: No
  Sender: FDA-Public Use
  Company Number: US-BAYER-2011-047924

PATIENT
  Sex: Female

DRUGS (2)
  1. ALEVE (CAPLET) [Suspect]
     Indication: PRODUCT USED FOR UNKNOWN INDICATION
     Dosage: 3 DAYS
     Route: 048
  2. ANTIHYPERTENSIVES [Concomitant]

REACTIONS (3)
  - RASH ERYTHEMATOUS [None]
  - SWELLING FACE [None]
  - PRURITUS [None]
